FAERS Safety Report 23461930 (Version 1)
Quarter: 2024Q1

REPORT INFORMATION
  Report Type: Spontaneous
  Country: US (occurrence: US)
  Receive Date: 20240131
  Receipt Date: 20240131
  Transmission Date: 20240409
  Serious: Yes (Other)
  Sender: FDA-Public Use
  Company Number: US-TEVA-VS-3143442

PATIENT
  Age: 65 Year
  Sex: Female

DRUGS (3)
  1. AJOVY [Suspect]
     Active Substance: FREMANEZUMAB-VFRM
     Indication: Product used for unknown indication
     Dosage: 225/1.5 MG/ML
     Route: 065
  2. AJOVY [Suspect]
     Active Substance: FREMANEZUMAB-VFRM
  3. BUTALBITAL [Suspect]
     Active Substance: BUTALBITAL
     Indication: Product used for unknown indication
     Route: 065

REACTIONS (6)
  - Hip fracture [Unknown]
  - Neuropathy peripheral [Unknown]
  - Memory impairment [Unknown]
  - Migraine [Unknown]
  - Intervertebral disc protrusion [Unknown]
  - Poliomyelitis [Unknown]
